FAERS Safety Report 13769357 (Version 8)
Quarter: 2019Q3

REPORT INFORMATION
  Report Type: Spontaneous
  Country: US (occurrence: US)
  Receive Date: 20170719
  Receipt Date: 20190813
  Transmission Date: 20191004
  Serious: No
  Sender: FDA-Public Use
  Company Number: US-ACTELION-A-US2017-156959

PATIENT
  Age: 44 Year
  Sex: Male
  Weight: 86.17 kg

DRUGS (6)
  1. ORENITRAM [Suspect]
     Active Substance: TREPROSTINIL
     Indication: PRODUCT USED FOR UNKNOWN INDICATION
     Dosage: 12 MG, UNK
     Route: 065
  2. REMODULIN [Concomitant]
     Active Substance: TREPROSTINIL
  3. OPSUMIT [Suspect]
     Active Substance: MACITENTAN
     Indication: PULMONARY ARTERIAL HYPERTENSION
     Dosage: 10 MG, QD
     Route: 048
  4. ORENITRAM [Suspect]
     Active Substance: TREPROSTINIL
     Dosage: 9 MG, TID
     Route: 048
  5. ORENITRAM [Suspect]
     Active Substance: TREPROSTINIL
     Dosage: 10 MG, UNK
     Route: 065
  6. ADCIRCA [Concomitant]
     Active Substance: TADALAFIL

REACTIONS (19)
  - Infusion site pain [Unknown]
  - Headache [Recovering/Resolving]
  - Fatigue [Unknown]
  - Device dislocation [Unknown]
  - Secretion discharge [Unknown]
  - Dyspepsia [Recovering/Resolving]
  - Faeces discoloured [Unknown]
  - Palpitations [Unknown]
  - Diarrhoea [Unknown]
  - Dyspnoea exertional [Unknown]
  - Product dose omission [Unknown]
  - Blister [Unknown]
  - Dyspnoea [Unknown]
  - Flushing [Unknown]
  - Infusion site erythema [Unknown]
  - Skin irritation [Unknown]
  - Pain in extremity [Unknown]
  - Erythema [Unknown]
  - Weight decreased [Unknown]

NARRATIVE: CASE EVENT DATE: 20170812
